FAERS Safety Report 5084698-3 (Version None)
Quarter: 2006Q3

REPORT INFORMATION
  Report Type: 
  Country: None (occurrence: None)
  Receive Date: 20060818
  Receipt Date: 20060818
  Transmission Date: 20061208
  Serious: Yes (Other)
  Sender: FDA-Public Use
  Company Number: None

PATIENT
  Age: 48 Year
  Sex: Female
  Weight: 131.5431 kg

DRUGS (1)
  1. LEVAQUIN [Suspect]
     Indication: URINARY TRACT INFECTION
     Dosage: 1 PILL OF 750 MG 1/2 PILL 325 MG PO
     Route: 048
     Dates: start: 20060804, end: 20060811

REACTIONS (12)
  - ARTHRALGIA [None]
  - FEAR [None]
  - INCONTINENCE [None]
  - MEMORY IMPAIRMENT [None]
  - MIDDLE INSOMNIA [None]
  - MUSCLE CONTRACTIONS INVOLUNTARY [None]
  - MUSCLE TIGHTNESS [None]
  - MUSCLE TWITCHING [None]
  - MUSCULOSKELETAL STIFFNESS [None]
  - MYALGIA [None]
  - RESTLESSNESS [None]
  - TENDON DISORDER [None]
